FAERS Safety Report 24407017 (Version 2)
Quarter: 2024Q4

REPORT INFORMATION
  Report Type: Spontaneous
  Country: US (occurrence: US)
  Receive Date: 20241007
  Receipt Date: 20241017
  Transmission Date: 20250115
  Serious: No
  Sender: SANOFI AVENTIS
  Company Number: US-SA-2024SA286198

PATIENT
  Sex: Female
  Weight: 75.283 kg

DRUGS (12)
  1. DUPIXENT [Suspect]
     Active Substance: DUPILUMAB
     Indication: Dermatitis atopic
     Dosage: 300 MG, QOW
     Route: 058
  2. OTEZLA [Concomitant]
     Active Substance: APREMILAST
  3. BUTALBITAL AND ACETAMINOPHEN [Concomitant]
     Active Substance: ACETAMINOPHEN\BUTALBITAL
  4. ESTRADIOL [Concomitant]
     Active Substance: ESTRADIOL
  5. OZEMPIC [Concomitant]
     Active Substance: SEMAGLUTIDE
  6. TRETINOIN [Concomitant]
     Active Substance: TRETINOIN
  7. NAPROXEN [Concomitant]
     Active Substance: NAPROXEN
  8. HYDROCHLOROTHIAZIDE [Concomitant]
     Active Substance: HYDROCHLOROTHIAZIDE
  9. FAMOTIDINE [Concomitant]
     Active Substance: FAMOTIDINE
  10. SERTRALINE [Concomitant]
     Active Substance: SERTRALINE HYDROCHLORIDE
  11. ATORVASTATIN [Concomitant]
     Active Substance: ATORVASTATIN
  12. BUPROPION [Concomitant]
     Active Substance: BUPROPION

REACTIONS (1)
  - Eczema [Unknown]
